FAERS Safety Report 5804811-7 (Version None)
Quarter: 2008Q3

REPORT INFORMATION
  Report Type: 
  Country: None (occurrence: None)
  Receive Date: 20080709
  Receipt Date: 20080317
  Transmission Date: 20090109
  Serious: Yes (Life-Threatening)
  Sender: FDA-Public Use
  Company Number: JP-PFIZER INC-2008055746

PATIENT
  Age: 76 Year
  Sex: Male

DRUGS (1)
  1. MIGLITOL TABLET [Suspect]
     Dosage: DAILY DOSE:50MG
     Route: 048
     Dates: start: 20071006, end: 20080301

REACTIONS (2)
  - BLOOD POTASSIUM INCREASED [None]
  - HYPERKALAEMIA [None]
